FAERS Safety Report 4657562-9 (Version None)
Quarter: 2005Q2

REPORT INFORMATION
  Report Type: 
  Country: None (occurrence: None)
  Receive Date: 20050405
  Receipt Date: 20041214
  Transmission Date: 20051028
  Serious: Yes (Hospitalization, Other)
  Sender: FDA-Public Use
  Company Number: 2004112466

PATIENT
  Sex: Female

DRUGS (4)
  1. GEODON [Suspect]
     Indication: ILL-DEFINED DISORDER
     Dosage: (20 MG),ORAL
     Route: 048
     Dates: start: 20040101
  2. XANAX XR [Suspect]
     Indication: ANXIETY
     Dosage: (1 MG)
  3. PAROXETINE HCL [Concomitant]
  4. RISPERDAL [Concomitant]

REACTIONS (1)
  - CONVULSION [None]
